FAERS Safety Report 6453635-9 (Version None)
Quarter: 2009Q4

REPORT INFORMATION
  Report Type: 
  Country: None (occurrence: None)
  Receive Date: 20091124
  Receipt Date: 20091111
  Transmission Date: 20100525
  Serious: Yes (Other)
  Sender: FDA-Public Use
  Company Number: PHEH2009US16166

PATIENT
  Sex: Female
  Weight: 61.678 kg

DRUGS (6)
  1. TEKTURNA HCT [Suspect]
     Indication: HYPERTENSION
     Dosage: 300/25
     Route: 048
     Dates: start: 20090730, end: 20091009
  2. ESTRING [Concomitant]
  3. CYMBALTA [Concomitant]
  4. VERAPAMIL [Concomitant]
  5. HYDROCHLOROTHIAZIDE [Concomitant]
  6. NEXIUM [Concomitant]

REACTIONS (1)
  - DEPRESSION [None]
